FAERS Safety Report 8591191-X (Version None)
Quarter: 2012Q3

REPORT INFORMATION
  Report Type: 
  Country: None (occurrence: None)
  Receive Date: 20120813
  Receipt Date: 20120809
  Transmission Date: 20120928
  Serious: Yes (Death)
  Sender: FDA-Public Use
  Company Number: US-BAYER-2012-075011

PATIENT
  Age: 22 Year
  Sex: Female

DRUGS (1)
  1. ULTRAVIST 150 [Suspect]
     Indication: COMPUTERISED TOMOGRAM ABDOMEN
     Dosage: 125 ML, ONCE
     Route: 042

REACTIONS (5)
  - ACUTE PULMONARY OEDEMA [None]
  - ANAPHYLACTIC REACTION [None]
  - PALPITATIONS [None]
  - CARDIAC ARREST [None]
  - DYSPNOEA [None]
